FAERS Safety Report 9104021 (Version 2)
Quarter: 2013Q1

REPORT INFORMATION
  Report Type: Report from Study
  Country: CA (occurrence: CA)
  Receive Date: 20130219
  Receipt Date: 20130318
  Transmission Date: 20140127
  Serious: Yes (Hospitalization)
  Sender: FDA-Public Use
  Company Number: CA-ROCHE-1172192

PATIENT
  Age: 61 None
  Sex: Male
  Weight: 163.5 kg

DRUGS (9)
  1. ACTEMRA [Suspect]
     Indication: RHEUMATOID ARTHRITIS
     Route: 042
     Dates: start: 20120127
  2. FOLIC ACID [Concomitant]
  3. METFORMIN [Concomitant]
  4. AMLODIPINE [Concomitant]
  5. RAMIPRIL [Concomitant]
  6. PREDNISONE [Concomitant]
  7. CRESTOR [Concomitant]
  8. GLICLAZIDE [Concomitant]
  9. WARFARIN [Concomitant]

REACTIONS (3)
  - Scrotal abscess [Not Recovered/Not Resolved]
  - Gangrene [Not Recovered/Not Resolved]
  - Weight increased [Not Recovered/Not Resolved]
